FAERS Safety Report 7870022-7 (Version None)
Quarter: 2011Q4

REPORT INFORMATION
  Report Type: 
  Country: None (occurrence: None)
  Receive Date: 20111028
  Receipt Date: 20111028
  Transmission Date: 20120403
  Serious: Yes (Hospitalization)
  Sender: FDA-Public Use
  Company Number: None

PATIENT
  Sex: Female
  Weight: 91.4 kg

DRUGS (2)
  1. TAXOTERE [Suspect]
     Dosage: 130 MG
     Dates: end: 20111013
  2. CARBOPLATIN [Suspect]
     Dosage: 386 MG
     Dates: end: 20111013

REACTIONS (3)
  - CHILLS [None]
  - FEBRILE NEUTROPENIA [None]
  - PYREXIA [None]
